FAERS Safety Report 23087356 (Version 1)
Quarter: 2023Q4

REPORT INFORMATION
  Report Type: Spontaneous
  Country: US (occurrence: US)
  Receive Date: 20231020
  Receipt Date: 20231020
  Transmission Date: 20240110
  Serious: Yes (Other)
  Sender: FDA-Public Use
  Company Number: US-HIKMA PHARMACEUTICALS-US-H14001-23-66018

PATIENT

DRUGS (12)
  1. AMIKACIN [Suspect]
     Active Substance: AMIKACIN
     Indication: Postoperative wound infection
     Dosage: UNKNOWN
     Route: 065
  2. AMIKACIN [Suspect]
     Active Substance: AMIKACIN
     Indication: Mycobacterium abscessus infection
  3. AMIKACIN [Suspect]
     Active Substance: AMIKACIN
     Indication: Arthralgia
  4. LINEZOLID [Suspect]
     Active Substance: LINEZOLID
     Indication: Postoperative wound infection
     Dosage: UNKNOWN
     Route: 065
  5. LINEZOLID [Suspect]
     Active Substance: LINEZOLID
     Indication: Mycobacterium abscessus infection
  6. LINEZOLID [Suspect]
     Active Substance: LINEZOLID
     Indication: Arthralgia
  7. CLARITHROMYCIN [Suspect]
     Active Substance: CLARITHROMYCIN
     Indication: Postoperative wound infection
     Dosage: UNKNOWN
     Route: 065
  8. CLARITHROMYCIN [Suspect]
     Active Substance: CLARITHROMYCIN
     Indication: Mycobacterium abscessus infection
  9. CLARITHROMYCIN [Suspect]
     Active Substance: CLARITHROMYCIN
     Indication: Arthralgia
  10. TIGECYCLINE [Suspect]
     Active Substance: TIGECYCLINE
     Indication: Postoperative wound infection
     Dosage: UNKNOWN
     Route: 065
  11. TIGECYCLINE [Suspect]
     Active Substance: TIGECYCLINE
     Indication: Mycobacterium abscessus infection
  12. TIGECYCLINE [Suspect]
     Active Substance: TIGECYCLINE
     Indication: Arthralgia

REACTIONS (2)
  - Wound abscess [Unknown]
  - Condition aggravated [Unknown]
